FAERS Safety Report 9634536 (Version 2)
Quarter: 2013Q4

REPORT INFORMATION
  Report Type: Spontaneous
  Country: FR (occurrence: FR)
  Receive Date: 20131021
  Receipt Date: 20131108
  Transmission Date: 20140711
  Serious: Yes (Life-Threatening, Hospitalization, Other)
  Sender: FDA-Public Use
  Company Number: FR-PFIZER INC-2013296967

PATIENT
  Age: 77 Year
  Sex: Female

DRUGS (5)
  1. SUTENT [Suspect]
     Indication: RENAL CANCER METASTATIC
     Dosage: 50 MG, 1X/DAY FOR 3 WEEKS
     Route: 048
     Dates: start: 201309, end: 2013
  2. HYDROCHLOROTHIAZIDE/IRBESARTAN [Suspect]
     Dosage: 1 DF, DAILY
  3. CELIPROLOL [Suspect]
     Indication: ESSENTIAL HYPERTENSION
     Dosage: 1 DF, DAILY
  4. PRAVASTATIN SODIUM [Suspect]
     Dosage: 1 DF, DAILY
     Route: 048
  5. SERESTA [Suspect]
     Dosage: 50 MG, UNK

REACTIONS (7)
  - Pulmonary embolism [Not Recovered/Not Resolved]
  - Phlebitis [Not Recovered/Not Resolved]
  - Thrombocytopenia [Recovered/Resolved]
  - Neutropenia [Not Recovered/Not Resolved]
  - Anaemia [Recovered/Resolved]
  - Leukopenia [Not Recovered/Not Resolved]
  - Urinary tract infection [Not Recovered/Not Resolved]
